FAERS Safety Report 15341059 (Version 1)
Quarter: 2018Q3

REPORT INFORMATION
  Report Type: Spontaneous
  Country: GB (occurrence: GB)
  Receive Date: 20180831
  Receipt Date: 20180831
  Transmission Date: 20181010
  Serious: Yes (Other)
  Sender: FDA-Public Use
  Company Number: GB-009507513-1808GBR011684

PATIENT
  Age: 71 Year
  Sex: Male

DRUGS (5)
  1. ASPIRIN. [Concomitant]
     Active Substance: ASPIRIN
  2. FLOXACILLIN [Concomitant]
     Active Substance: FLUCLOXACILLIN
  3. VANCOCIN [Concomitant]
     Active Substance: VANCOMYCIN HYDROCHLORIDE
  4. DAPTOMYCIN. [Suspect]
     Active Substance: DAPTOMYCIN
     Indication: ENDOCARDITIS BACTERIAL
     Dosage: 500 MG, UNK
     Route: 042
     Dates: start: 20180802, end: 20180807
  5. GENTAMICIN. [Concomitant]
     Active Substance: GENTAMICIN

REACTIONS (5)
  - Periorbital oedema [Unknown]
  - Urticaria [Unknown]
  - Peripheral swelling [Unknown]
  - Drug hypersensitivity [Recovering/Resolving]
  - Pruritus [Unknown]

NARRATIVE: CASE EVENT DATE: 20180807
